FAERS Safety Report 12313857 (Version 1)
Quarter: 2016Q2

REPORT INFORMATION
  Report Type: Spontaneous
  Country: US (occurrence: US)
  Receive Date: 20160428
  Receipt Date: 20160428
  Transmission Date: 20160815
  Serious: No
  Sender: FDA-Public Use
  Company Number: US-BAUSCH-BL-2015-010871

PATIENT
  Sex: Male

DRUGS (2)
  1. ZYCLARA [Suspect]
     Active Substance: IMIQUIMOD
     Indication: SKIN CANCER
     Route: 061
     Dates: start: 2015
  2. ZYCLARA [Suspect]
     Active Substance: IMIQUIMOD
     Route: 061
     Dates: end: 20150325

REACTIONS (2)
  - Dysuria [Recovered/Resolved]
  - Influenza like illness [Recovered/Resolved]

NARRATIVE: CASE EVENT DATE: 2015
